FAERS Safety Report 6364140-2 (Version None)
Quarter: 2009Q3

REPORT INFORMATION
  Report Type: 
  Country: None (occurrence: None)
  Receive Date: 20090919
  Receipt Date: 20090815
  Transmission Date: 20100115
  Serious: No
  Sender: FDA-Public Use
  Company Number: US-ABBOTT-08P-163-0450905-00

PATIENT
  Sex: Female

DRUGS (5)
  1. HUMIRA [Suspect]
     Indication: CROHN'S DISEASE
     Route: 058
     Dates: start: 20080301
  2. ERYTHROMYCIN [Suspect]
     Indication: COUGH
     Route: 048
     Dates: start: 20080507, end: 20080507
  3. ERYTHROMYCIN [Suspect]
     Indication: SINUS CONGESTION
     Route: 048
  4. IMURAN [Concomitant]
     Indication: DRUG USE FOR UNKNOWN INDICATION
  5. QUESTRAN [Concomitant]
     Indication: PROPHYLAXIS

REACTIONS (4)
  - COUGH [None]
  - FISTULA [None]
  - RASH [None]
  - SINUS CONGESTION [None]
